FAERS Safety Report 5158493-0 (Version None)
Quarter: 2006Q4

REPORT INFORMATION
  Report Type: 
  Country: None (occurrence: None)
  Receive Date: 20061128
  Receipt Date: 20051214
  Transmission Date: 20070319
  Serious: Yes (Death, Hospitalization)
  Sender: FDA-Public Use
  Company Number: PHHO2005JP19482

PATIENT
  Age: 73 Year
  Sex: Male
  Weight: 49 kg

DRUGS (8)
  1. GLEEVEC [Suspect]
     Indication: GASTROINTESTINAL STROMAL TUMOUR
     Dosage: 400 MG, QD
     Route: 048
     Dates: start: 20051207, end: 20051208
  2. GLEEVEC [Suspect]
     Dosage: 400 MG, QD
     Route: 048
     Dates: start: 20051122, end: 20051205
  3. ASPIRIN [Concomitant]
     Indication: HYPERTROPHIC CARDIOMYOPATHY
     Dosage: 100 MG, UNK
     Route: 048
     Dates: start: 20051101, end: 20051208
  4. OLMETEC [Concomitant]
     Indication: HYPERTENSION
     Dosage: 10 MG, UNK
     Route: 048
     Dates: start: 20051115, end: 20051205
  5. MAGLAX [Concomitant]
  6. LASIX [Concomitant]
  7. LAXOBERON [Concomitant]
  8. DIASTASE [Concomitant]

REACTIONS (21)
  - ALANINE AMINOTRANSFERASE INCREASED [None]
  - AMYLOIDOSIS [None]
  - ASPARTATE AMINOTRANSFERASE INCREASED [None]
  - BLOOD CREATININE INCREASED [None]
  - CARDIAC ARREST [None]
  - CARDIAC FAILURE [None]
  - CARDIOMYOPATHY [None]
  - CONCOMITANT DISEASE PROGRESSION [None]
  - FACE OEDEMA [None]
  - FLUID INTAKE REDUCED [None]
  - HEPATIC CONGESTION [None]
  - HEPATIC ENZYME INCREASED [None]
  - HEPATIC FUNCTION ABNORMAL [None]
  - HYPERKALAEMIA [None]
  - HYPERTROPHIC CARDIOMYOPATHY [None]
  - NAUSEA [None]
  - OEDEMA PERIPHERAL [None]
  - ORAL INTAKE REDUCED [None]
  - RENAL DISORDER [None]
  - RENAL IMPAIRMENT [None]
  - VENTRICULAR FIBRILLATION [None]
